FAERS Safety Report 21041942 (Version 4)
Quarter: 2023Q2

REPORT INFORMATION
  Report Type: Report from Study
  Country: US (occurrence: US)
  Receive Date: 20220705
  Receipt Date: 20230403
  Transmission Date: 20230722
  Serious: Yes (Hospitalization)
  Sender: FDA-Public Use
  Company Number: US-NOVARTISPH-NVSC2022US149194

PATIENT
  Age: 53 Year
  Sex: Male
  Weight: 32.2 kg

DRUGS (15)
  1. SCEMBLIX [Suspect]
     Active Substance: ASCIMINIB HYDROCHLORIDE
     Indication: Chronic myeloid leukaemia
     Dosage: 200 MG, BID
     Route: 048
     Dates: start: 20211117, end: 20220624
  2. SCEMBLIX [Suspect]
     Active Substance: ASCIMINIB HYDROCHLORIDE
     Dosage: 200 MG, BID
     Route: 048
     Dates: start: 20220627
  3. ONDANSETRON [Concomitant]
     Active Substance: ONDANSETRON
     Indication: Nausea
     Dosage: UNK
     Route: 065
     Dates: start: 20220624, end: 20220624
  4. AMLODIPINE BESYLATE [Concomitant]
     Active Substance: AMLODIPINE BESYLATE
     Indication: Hypertension
     Dosage: UNK
     Route: 065
     Dates: start: 2020
  5. NOVOLOG [Concomitant]
     Active Substance: INSULIN ASPART
     Indication: Type 2 diabetes mellitus
     Dosage: MIX 70/30 (SUSPENSION)
     Route: 065
     Dates: start: 2015
  6. CYMBALTA [Concomitant]
     Active Substance: DULOXETINE HYDROCHLORIDE
     Indication: Back pain
     Dosage: UNK
     Route: 065
     Dates: start: 20220624, end: 20220626
  7. LOVENOX [Concomitant]
     Active Substance: ENOXAPARIN SODIUM
     Indication: Thrombosis prophylaxis
     Dosage: UNK
     Route: 058
     Dates: start: 20220624, end: 20220626
  8. ALLOPURINOL [Concomitant]
     Active Substance: ALLOPURINOL
     Indication: Prophylaxis
     Dosage: UNK
     Route: 065
     Dates: start: 20220624, end: 20220626
  9. GLUCERNA [Concomitant]
     Active Substance: AMINO ACIDS\DEXTROSE\ELECTROLYTES NOS\SOYBEAN OIL\VITAMINS
     Indication: Type 2 diabetes mellitus
     Dosage: UNK
     Route: 065
     Dates: start: 20220624
  10. BASAGLAR [Concomitant]
     Active Substance: INSULIN GLARGINE
     Indication: Type 2 diabetes mellitus
     Dosage: UNK
     Route: 065
     Dates: start: 2015
  11. BRIMONIDINE TARTRATE\DORZOLAMIDE HYDROCHLORIDE\TIMOLOL MALEATE [Concomitant]
     Active Substance: BRIMONIDINE TARTRATE\DORZOLAMIDE HYDROCHLORIDE\TIMOLOL MALEATE
     Indication: Intraocular pressure increased
     Dosage: UNK
     Route: 065
     Dates: start: 2016
  12. COLACE [Concomitant]
     Active Substance: DOCUSATE SODIUM
     Indication: Constipation prophylaxis
     Dosage: UNK
     Route: 065
     Dates: start: 2019
  13. COREG [Concomitant]
     Active Substance: CARVEDILOL
     Indication: Hypertension
     Dosage: UNK
     Route: 065
     Dates: start: 2020
  14. DORZOLAMIDE HYDROCHLORIDE\TIMOLOL MALEATE [Concomitant]
     Active Substance: DORZOLAMIDE HYDROCHLORIDE\TIMOLOL MALEATE
     Indication: Diabetic retinopathy
     Dosage: UNK
     Route: 065
     Dates: start: 2016
  15. NEURONTIN [Concomitant]
     Active Substance: GABAPENTIN
     Indication: Diabetic neuropathy
     Dosage: UNK
     Route: 065
     Dates: start: 2006

REACTIONS (1)
  - Malaise [Recovered/Resolved]

NARRATIVE: CASE EVENT DATE: 20220624
